FAERS Safety Report 4422820-X (Version None)
Quarter: 2004Q3

REPORT INFORMATION
  Report Type: 
  Country: None (occurrence: None)
  Receive Date: 20040811
  Receipt Date: 20040805
  Transmission Date: 20050211
  Serious: Yes (Life-Threatening, Hospitalization)
  Sender: FDA-Public Use
  Company Number: US-BRISTOL-MYERS SQUIBB COMPANY-12662607

PATIENT
  Age: 49 Year
  Sex: Female
  Weight: 88 kg

DRUGS (4)
  1. EFAVIRENZ [Suspect]
     Indication: HIV INFECTION
     Dates: start: 20010404
  2. ASPIRIN [Concomitant]
     Dosage: ^YEARS^
  3. GUAIFENEX [Concomitant]
  4. DYAZIDE [Concomitant]

REACTIONS (1)
  - PULMONARY EMBOLISM [None]
